FAERS Safety Report 5130624-8 (Version None)
Quarter: 2006Q4

REPORT INFORMATION
  Report Type: 
  Country: None (occurrence: None)
  Receive Date: 20061017
  Receipt Date: 20061017
  Transmission Date: 20070319
  Serious: Yes (Hospitalization)
  Sender: FDA-Public Use
  Company Number: None

PATIENT
  Sex: Male
  Weight: 125 kg

DRUGS (7)
  1. GLIADEL [Suspect]
     Indication: GLIOBLASTOMA MULTIFORME
     Dosage: 7.7 MG PER WAFER ONCE IV
     Route: 042
     Dates: start: 20060405
  2. O6-BENZYLGUANINE (O6BG) [Suspect]
     Indication: GLIOBLASTOMA MULTIFORME
     Dosage: 30 MG/M2 INFUSION X 5 DAYS IV
     Route: 042
     Dates: start: 20060405, end: 20060410
  3. COUMADIN [Concomitant]
  4. TOPROL-XL [Concomitant]
  5. CADUET [Concomitant]
  6. PRILOSEC [Concomitant]
  7. CENTRUM SILVER [Concomitant]

REACTIONS (12)
  - BALANCE DISORDER [None]
  - BLOOD UREA INCREASED [None]
  - CONFUSIONAL STATE [None]
  - FATIGUE [None]
  - GAIT DISTURBANCE [None]
  - HYDROCEPHALUS [None]
  - MALAISE [None]
  - NAUSEA [None]
  - PROCEDURAL SITE REACTION [None]
  - PSEUDOMENINGOCELE [None]
  - THROMBOCYTOPENIA [None]
  - VOMITING [None]
